FAERS Safety Report 6437327-8 (Version None)
Quarter: 2009Q4

REPORT INFORMATION
  Report Type: 
  Country: None (occurrence: None)
  Receive Date: 20091112
  Receipt Date: 20091105
  Transmission Date: 20100525
  Serious: Yes (Death, Other)
  Sender: FDA-Public Use
  Company Number: HU-ELI_LILLY_AND_COMPANY-HU200908001739

PATIENT
  Sex: Female
  Weight: 49 kg

DRUGS (10)
  1. ALIMTA [Suspect]
     Indication: LUNG ADENOCARCINOMA STAGE IV
     Dosage: 700 MG, UNKNOWN
     Route: 065
     Dates: start: 20090629
  2. VITAMIN B-12 [Concomitant]
  3. FOLIC ACID [Concomitant]
  4. MEDROL [Concomitant]
  5. BETALOC ZOK [Concomitant]
     Dosage: 3 X 25MG
     Route: 065
  6. BETALOC ZOK [Concomitant]
     Dosage: 50 MG, DAILY (1/D)
     Route: 065
  7. TRITACE [Concomitant]
     Dosage: 2 X 10 MG,
     Route: 065
  8. CARDURA [Concomitant]
     Dosage: 4 MG, DAILY (1/D)
     Route: 065
  9. INDAPAMIDE [Concomitant]
     Dosage: 1 D/F, DAILY (1/D)
     Route: 065
  10. TENAXUM [Concomitant]
     Dosage: 5 MG, DAILY (1/D)
     Route: 065

REACTIONS (3)
  - MYOCARDIAL INFARCTION [None]
  - PULMONARY OEDEMA [None]
  - RESPIRATORY DISTRESS [None]
